FAERS Safety Report 12777088 (Version 1)
Quarter: 2016Q3

REPORT INFORMATION
  Report Type: Report from Study
  Country: US (occurrence: US)
  Receive Date: 20160923
  Receipt Date: 20160923
  Transmission Date: 20161109
  Serious: Yes (Death, Other)
  Sender: FDA-Public Use
  Company Number: US-AMGEN-USASL2016129617

PATIENT
  Age: 76 Year
  Sex: Female

DRUGS (1)
  1. KYPROLIS [Suspect]
     Active Substance: CARFILZOMIB
     Indication: PLASMA CELL MYELOMA
     Dosage: 60 MG, ONE VIAL EVERY SIX DAYS FOR FIRST CYCLE
     Route: 065
     Dates: start: 20160818, end: 20160901

REACTIONS (3)
  - Hospice care [Unknown]
  - Intentional product misuse [Unknown]
  - Death [Fatal]

NARRATIVE: CASE EVENT DATE: 2016
